FAERS Safety Report 12105385 (Version 1)
Quarter: 2016Q1

REPORT INFORMATION
  Report Type: Report from Study
  Country: CA (occurrence: CA)
  Receive Date: 20160223
  Receipt Date: 20160223
  Transmission Date: 20160526
  Serious: Yes (Hospitalization)
  Sender: FDA-Public Use
  Company Number: CA-JNJFOC-20160217072

PATIENT
  Age: 53 Year
  Sex: Female
  Weight: 49.49 kg

DRUGS (1)
  1. SIMPONI [Suspect]
     Active Substance: GOLIMUMAB
     Indication: ANKYLOSING SPONDYLITIS
     Route: 058
     Dates: start: 20140113

REACTIONS (2)
  - Cellulitis [Unknown]
  - Bone disorder [Unknown]

NARRATIVE: CASE EVENT DATE: 20160213
